FAERS Safety Report 7156104-6 (Version None)
Quarter: 2010Q4

REPORT INFORMATION
  Report Type: 
  Country: None (occurrence: None)
  Receive Date: 20101123
  Receipt Date: 20100917
  Transmission Date: 20110411
  Serious: Yes (Other)
  Sender: FDA-Public Use
  Company Number: 018985

PATIENT
  Sex: Female
  Weight: 166 kg

DRUGS (6)
  1. CIMZIA [Suspect]
     Indication: CROHN'S DISEASE
     Dosage: 400 MG 1X/MONTH SUBCUTANEOUS
     Route: 058
     Dates: start: 20100819
  2. HYDROCHLOROTHIAZIDE [Concomitant]
  3. TRAZODONE [Concomitant]
  4. CYMBALTA [Concomitant]
  5. DEXLANSOPRAZOLE [Concomitant]
  6. PHENERGAN HCL [Concomitant]

REACTIONS (1)
  - DYSPNOEA [None]
